FAERS Safety Report 4642919-2 (Version None)
Quarter: 2005Q2

REPORT INFORMATION
  Report Type: 
  Country: None (occurrence: None)
  Receive Date: 20050421
  Receipt Date: 20050405
  Transmission Date: 20051028
  Serious: Yes (Hospitalization)
  Sender: FDA-Public Use
  Company Number: WAES 0503NOR00042

PATIENT
  Age: 59 Year
  Sex: Male

DRUGS (5)
  1. TAB ETORICOXIB 90 MG [Suspect]
     Indication: OSTEOARTHRITIS
     Dosage: 90 MG/DAILY/PO
     Route: 048
     Dates: start: 20041026, end: 20050226
  2. VIOXX [Suspect]
     Indication: OSTEOARTHRITIS
     Dosage: 25 MG/BID/PO
     Route: 048
     Dates: start: 20040831, end: 20041025
  3. VASERETIC [Concomitant]
  4. AMLODIPINE BESYLATE [Concomitant]
  5. METOPROLOL TARTRATE [Concomitant]

REACTIONS (2)
  - CORONARY ARTERY OCCLUSION [None]
  - MYOCARDIAL INFARCTION [None]
